FAERS Safety Report 7461262-X (Version None)
Quarter: 2011Q2

REPORT INFORMATION
  Report Type: 
  Country: None (occurrence: None)
  Receive Date: 20110506
  Receipt Date: 20110426
  Transmission Date: 20111010
  Serious: Yes (Hospitalization)
  Sender: FDA-Public Use
  Company Number: US-BIOGENIDEC-2011BI015948

PATIENT
  Age: 46 Year
  Sex: Female

DRUGS (1)
  1. TYSABRI [Suspect]
     Indication: MULTIPLE SCLEROSIS
     Route: 042
     Dates: start: 20100707

REACTIONS (7)
  - VISION BLURRED [None]
  - MOBILITY DECREASED [None]
  - PERIPHERAL COLDNESS [None]
  - CENTRAL NERVOUS SYSTEM LESION [None]
  - SKIN DISCOLOURATION [None]
  - FALL [None]
  - ABASIA [None]
